FAERS Safety Report 7427807-0 (Version None)
Quarter: 2011Q2

REPORT INFORMATION
  Report Type: 
  Country: None (occurrence: None)
  Receive Date: 20110421
  Receipt Date: 20101116
  Transmission Date: 20111010
  Serious: Yes (Hospitalization, Other)
  Sender: FDA-Public Use
  Company Number: US-BAYER-201025542NA

PATIENT
  Age: 27 Year
  Sex: Female
  Weight: 88.435 kg

DRUGS (3)
  1. YAZ [Suspect]
     Indication: CONTRACEPTION
     Dosage: UNK UNK, UNK
     Route: 048
     Dates: start: 20080611, end: 20090101
  2. ADVIL LIQUI-GELS [Concomitant]
  3. YASMIN [Suspect]
     Indication: CONTRACEPTION
     Dosage: UNK UNK, QD
     Route: 048
     Dates: start: 20040622, end: 20080601

REACTIONS (8)
  - POST PROCEDURAL COMPLICATION [None]
  - CHOLECYSTITIS ACUTE [None]
  - CHOLELITHIASIS [None]
  - BACK PAIN [None]
  - NAUSEA [None]
  - PAIN [None]
  - VOMITING [None]
  - ABDOMINAL PAIN UPPER [None]
